FAERS Safety Report 8002063-3 (Version None)
Quarter: 2011Q4

REPORT INFORMATION
  Report Type: 
  Country: None (occurrence: None)
  Receive Date: 20111222
  Receipt Date: 20111215
  Transmission Date: 20120403
  Serious: Yes (Hospitalization, Other)
  Sender: FDA-Public Use
  Company Number: PHHY2011AU109354

PATIENT
  Age: 49 Year
  Sex: Female

DRUGS (1)
  1. LAMOTRIGINE [Suspect]
     Indication: BACK PAIN

REACTIONS (12)
  - DYSPNOEA [None]
  - ABDOMINAL DISCOMFORT [None]
  - RASH MACULO-PAPULAR [None]
  - RASH [None]
  - ABDOMINAL PAIN [None]
  - HEADACHE [None]
  - HEPATITIS [None]
  - BACK PAIN [None]
  - PLEURAL EFFUSION [None]
  - DRUG RASH WITH EOSINOPHILIA AND SYSTEMIC SYMPTOMS [None]
  - PYREXIA [None]
  - THROMBOCYTOPENIA [None]
